FAERS Safety Report 5191108-4 (Version None)
Quarter: 2006Q4

REPORT INFORMATION
  Report Type: 
  Country: None (occurrence: None)
  Receive Date: 20061226
  Receipt Date: 20061218
  Transmission Date: 20070319
  Serious: Yes (Other)
  Sender: FDA-Public Use
  Company Number: PHRM2006FR03379

PATIENT
  Age: 58 Year
  Sex: Female

DRUGS (1)
  1. FEMARA [Suspect]
     Indication: BREAST CANCER
     Dosage: 2.5 MG, QD
     Route: 048
     Dates: start: 20061001

REACTIONS (5)
  - ARTHRALGIA [None]
  - HYPERHIDROSIS [None]
  - INSOMNIA [None]
  - PALPITATIONS [None]
  - TACHYCARDIA [None]
